FAERS Safety Report 7868700-9 (Version None)
Quarter: 2011Q4

REPORT INFORMATION
  Report Type: 
  Country: None (occurrence: None)
  Receive Date: 20111028
  Receipt Date: 20101216
  Transmission Date: 20120403
  Serious: No
  Sender: FDA-Public Use
  Company Number: US-AMGEN-USASP2010009723

PATIENT
  Age: 70 Year
  Sex: Female

DRUGS (1)
  1. ENBREL [Suspect]
     Indication: RHEUMATOID ARTHRITIS
     Dosage: 50 MG, QWK
     Dates: start: 20100820

REACTIONS (9)
  - PRODUCTIVE COUGH [None]
  - DIARRHOEA [None]
  - NECK PAIN [None]
  - VOMITING [None]
  - MUSCULOSKELETAL PAIN [None]
  - SINUSITIS [None]
  - KIDNEY INFECTION [None]
  - MUSCLE SPASMS [None]
  - DIZZINESS [None]
